FAERS Safety Report 5974599-8 (Version None)
Quarter: 2008Q4

REPORT INFORMATION
  Report Type: 
  Country: None (occurrence: None)
  Receive Date: 20081201
  Receipt Date: 20080131
  Transmission Date: 20090506
  Serious: No
  Sender: FDA-Public Use
  Company Number: US-AMGEN-KDL263582

PATIENT
  Sex: Female

DRUGS (1)
  1. ENBREL [Suspect]
     Indication: PSORIASIS
     Route: 058
     Dates: start: 20050329

REACTIONS (7)
  - EAR INFECTION [None]
  - INJECTION SITE PAIN [None]
  - PHOTOPHOBIA [None]
  - SINUS HEADACHE [None]
  - SINUSITIS [None]
  - SKIN BURNING SENSATION [None]
  - SKIN INFECTION [None]
